FAERS Safety Report 14413398 (Version 3)
Quarter: 2024Q2

REPORT INFORMATION
  Report Type: Report from Study
  Country: CA (occurrence: CA)
  Receive Date: 20180119
  Receipt Date: 20240516
  Transmission Date: 20240716
  Serious: Yes (Other)
  Sender: FDA-Public Use
  Company Number: CA-TAKEDA-2018TUS001346

PATIENT
  Age: 34 Year
  Sex: Female

DRUGS (5)
  1. VEDOLIZUMAB [Suspect]
     Active Substance: VEDOLIZUMAB
     Indication: Colitis ulcerative
     Dosage: 300 MILLIGRAM
     Route: 042
     Dates: start: 20171208, end: 20171208
  2. VEDOLIZUMAB [Suspect]
     Active Substance: VEDOLIZUMAB
     Dosage: 300 MILLIGRAM
     Route: 042
     Dates: start: 20201014
  3. VEDOLIZUMAB [Suspect]
     Active Substance: VEDOLIZUMAB
     Dosage: 300 MILLIGRAM, Q4WEEKS
     Route: 042
     Dates: start: 20240509
  4. Cortiment [Concomitant]
     Dosage: 9 MILLIGRAM, QD
  5. PREDNISONE [Concomitant]
     Active Substance: PREDNISONE
     Dosage: 35 MILLIGRAM

REACTIONS (3)
  - Colitis ulcerative [Unknown]
  - Pouchitis [Unknown]
  - Off label use [Unknown]

NARRATIVE: CASE EVENT DATE: 20240509
